FAERS Safety Report 22050757 (Version 1)
Quarter: 2023Q1

REPORT INFORMATION
  Report Type: Spontaneous
  Country: US (occurrence: US)
  Receive Date: 20230301
  Receipt Date: 20230301
  Transmission Date: 20230417
  Serious: Yes (Other)
  Sender: FDA-Public Use
  Company Number: US-Blueprint Medicines Corporation-881

PATIENT
  Sex: Male

DRUGS (1)
  1. AYVAKIT [Suspect]
     Active Substance: AVAPRITINIB
     Indication: Systemic mastocytosis
     Route: 065
     Dates: start: 20220823

REACTIONS (4)
  - Gastrointestinal obstruction [Unknown]
  - Attention deficit hyperactivity disorder [Unknown]
  - Blood potassium decreased [Unknown]
  - Post-traumatic stress disorder [Unknown]
